FAERS Safety Report 8113547-1 (Version None)
Quarter: 2012Q1

REPORT INFORMATION
  Report Type: 
  Country: None (occurrence: None)
  Receive Date: 20120203
  Receipt Date: 20120130
  Transmission Date: 20120608
  Serious: Yes (Hospitalization)
  Sender: FDA-Public Use
  Company Number: PHHY2011GB110667

PATIENT
  Age: 66 Year
  Sex: Male

DRUGS (5)
  1. METHOTREXATE [Suspect]
     Indication: PSORIASIS
     Dosage: 5 MG, QW
     Route: 048
     Dates: start: 20110801, end: 20111001
  2. SIMVASTATIN [Concomitant]
     Route: 048
  3. HUMIRA [Suspect]
     Indication: PSORIASIS
     Dosage: 40 MG, BIW
     Route: 058
     Dates: start: 20090301, end: 20111001
  4. NICORANDIL [Concomitant]
     Route: 048
  5. OMEPRAZOLE [Concomitant]
     Route: 048

REACTIONS (2)
  - RENAL MASS [None]
  - RENAL CELL CARCINOMA [None]
